FAERS Safety Report 9450906 (Version 1)
Quarter: 2013Q3

REPORT INFORMATION
  Report Type: Spontaneous
  Country: US (occurrence: US)
  Receive Date: 20130809
  Receipt Date: 20130809
  Transmission Date: 20140515
  Serious: Yes (Other)
  Sender: FDA-Public Use
  Company Number: US-UCBSA-093628

PATIENT
  Age: 53 Year
  Sex: Male
  Weight: 72.57 kg

DRUGS (6)
  1. VIMPAT [Suspect]
     Indication: CONVULSION
  2. LAMICTAL [Concomitant]
     Indication: CONVULSION
     Route: 048
  3. PROTONIX [Concomitant]
     Indication: BARRETT^S OESOPHAGUS
     Route: 048
  4. CLONAZEPAM [Concomitant]
     Indication: ANXIETY
     Route: 048
  5. ZOLOFT [Concomitant]
     Indication: DEPRESSION
     Dosage: ONE AT BED TIME
     Route: 048
  6. PRO AIR [Concomitant]
     Indication: ASTHMA
     Route: 055

REACTIONS (1)
  - Convulsion [Not Recovered/Not Resolved]
